FAERS Safety Report 5524292-0 (Version None)
Quarter: 2007Q4

REPORT INFORMATION
  Report Type: 
  Country: None (occurrence: None)
  Receive Date: 20071121
  Receipt Date: 20071114
  Transmission Date: 20080405
  Serious: Yes (Other)
  Sender: FDA-Public Use
  Company Number: GB-PFIZER INC-2007092439

PATIENT
  Sex: Male
  Weight: 89 kg

DRUGS (7)
  1. DETRUSITOL XL [Suspect]
     Indication: MICTURITION URGENCY
     Route: 048
  2. DETRUSITOL XL [Suspect]
  3. SINEMET [Concomitant]
     Route: 048
  4. MADOPAR CR [Concomitant]
     Route: 048
  5. SILDENAFIL CITRATE [Concomitant]
     Route: 048
  6. ENTACAPONE [Concomitant]
     Route: 048
  7. AMANTADINE HYDROCHLORIDE [Concomitant]
     Route: 048

REACTIONS (5)
  - CONFUSIONAL STATE [None]
  - CONSTIPATION [None]
  - FAECAL INCONTINENCE [None]
  - OESOPHAGEAL DISORDER [None]
  - PARKINSON'S DISEASE [None]
